FAERS Safety Report 23846541 (Version 1)
Quarter: 2024Q2

REPORT INFORMATION
  Report Type: Spontaneous
  Country: US (occurrence: US)
  Receive Date: 20240513
  Receipt Date: 20240513
  Transmission Date: 20240715
  Serious: No
  Sender: FDA-Public Use
  Company Number: US-BoehringerIngelheim-2024-BI-027096

PATIENT
  Sex: Female

DRUGS (1)
  1. JARDIANCE [Suspect]
     Active Substance: EMPAGLIFLOZIN
     Indication: Product used for unknown indication

REACTIONS (5)
  - Skin ulcer [Not Recovered/Not Resolved]
  - Arthralgia [Unknown]
  - Peripheral swelling [Unknown]
  - Joint swelling [Unknown]
  - Blister [Unknown]

NARRATIVE: CASE EVENT DATE: 20240101
